FAERS Safety Report 5992161-8 (Version None)
Quarter: 2008Q4

REPORT INFORMATION
  Report Type: 
  Country: None (occurrence: None)
  Receive Date: 20081202
  Receipt Date: 20080414
  Transmission Date: 20090506
  Serious: Yes (Hospitalization, Other)
  Sender: FDA-Public Use
  Company Number: WAES 0705USA05345

PATIENT
  Age: 67 Year
  Sex: Female

DRUGS (2)
  1. FOSAMAX [Suspect]
     Indication: OSTEOPOROSIS
     Dosage: 5 MG/PO
     Route: 048
     Dates: start: 20000401, end: 20000501
  2. ESTROGENS (UNSPECIFIED) [Concomitant]

REACTIONS (4)
  - ARTHRALGIA [None]
  - BLOOD CHOLESTEROL DECREASED [None]
  - OSTEOMYELITIS [None]
  - TOOTH LOSS [None]
